FAERS Safety Report 16844462 (Version 1)
Quarter: 2019Q4

REPORT INFORMATION
  Report Type: Spontaneous
  Country: US (occurrence: US)
  Receive Date: 20190923
  Receipt Date: 20190923
  Transmission Date: 20200122
  Serious: Yes (Other)
  Sender: FDA-Public Use
  Company Number: None

PATIENT
  Age: 73 Year
  Sex: Female
  Weight: 105.75 kg

DRUGS (20)
  1. RANITIDINE. [Concomitant]
     Active Substance: RANITIDINE
  2. DICLOFENAC [Concomitant]
     Active Substance: DICLOFENAC
  3. MECLIZINE [Concomitant]
     Active Substance: MECLIZINE HYDROCHLORIDE
  4. ALLOPURINOL. [Concomitant]
     Active Substance: ALLOPURINOL
  5. GINGER. [Concomitant]
     Active Substance: GINGER
  6. VITAMIN C [Concomitant]
     Active Substance: ASCORBIC ACID
  7. MULTIVITAMIN [Concomitant]
     Active Substance: VITAMINS
  8. GABAPENTIN. [Concomitant]
     Active Substance: GABAPENTIN
  9. BUPROPION. [Concomitant]
     Active Substance: BUPROPION
  10. MONTELUKAST [Concomitant]
     Active Substance: MONTELUKAST SODIUM
  11. ADVAIR HFA [Concomitant]
     Active Substance: FLUTICASONE PROPIONATE\SALMETEROL XINAFOATE
  12. SIMBASTATIN [Concomitant]
  13. ASPIRIN. [Concomitant]
     Active Substance: ASPIRIN
  14. PROBIOTIC [Concomitant]
     Active Substance: PROBIOTICS NOS
  15. NAPROXEN. [Concomitant]
     Active Substance: NAPROXEN
  16. PRILOSEC [Concomitant]
     Active Substance: OMEPRAZOLE MAGNESIUM
  17. TROSPIUM CHLORIDE ER [Suspect]
     Active Substance: TROSPIUM CHLORIDE
     Indication: HYPERTONIC BLADDER
     Dosage: ??          QUANTITY:1 CAPSULE(S);?
     Route: 048
     Dates: start: 20190922, end: 20190923
  18. FLONASE [Concomitant]
     Active Substance: FLUTICASONE PROPIONATE
  19. VITAMIN D [Concomitant]
     Active Substance: VITAMIN D NOS
  20. ZYRTEC [Concomitant]
     Active Substance: CETIRIZINE HYDROCHLORIDE

REACTIONS (6)
  - Rash erythematous [None]
  - Headache [None]
  - Urinary retention [None]
  - Pruritus [None]
  - Oropharyngeal pain [None]
  - Hyperhidrosis [None]

NARRATIVE: CASE EVENT DATE: 20190923
